FAERS Safety Report 24577549 (Version 1)
Quarter: 2024Q4

REPORT INFORMATION
  Report Type: Spontaneous
  Country: US (occurrence: US)
  Receive Date: 20241104
  Receipt Date: 20241104
  Transmission Date: 20250115
  Serious: No
  Sender: PERRIGO
  Company Number: US-PERRIGO-24US006982

PATIENT
  Age: 90 Year
  Sex: Female
  Weight: 81.633 kg

DRUGS (1)
  1. POLYETHYLENE GLYCOL 3350 [Suspect]
     Active Substance: POLYETHYLENE GLYCOL 3350
     Indication: Constipation
     Dosage: UNKNOWN, QD
     Route: 048
     Dates: start: 20240622, end: 20240713

REACTIONS (4)
  - Abdominal pain upper [Recovered/Resolved]
  - Abdominal distension [Recovered/Resolved]
  - Underdose [Unknown]
  - Incorrect product administration duration [Unknown]

NARRATIVE: CASE EVENT DATE: 20240622
